FAERS Safety Report 4402758-4 (Version None)
Quarter: 2004Q3

REPORT INFORMATION
  Report Type: 
  Country: None (occurrence: None)
  Receive Date: 20040720
  Receipt Date: 20040720
  Transmission Date: 20050211
  Serious: No
  Sender: FDA-Public Use
  Company Number: None

PATIENT
  Age: 69 Year
  Sex: Female

DRUGS (2)
  1. ZETIA [Suspect]
     Indication: BLOOD CHOLESTEROL
     Dosage: PO QD
     Route: 048
     Dates: start: 20030708, end: 20040708
  2. CLIMARA [Concomitant]

REACTIONS (1)
  - ALOPECIA [None]
